FAERS Safety Report 25996821 (Version 1)
Quarter: 2025Q4

REPORT INFORMATION
  Report Type: Spontaneous
  Country: CH (occurrence: CH)
  Receive Date: 20251104
  Receipt Date: 20251104
  Transmission Date: 20260118
  Serious: Yes (Other)
  Sender: AMGEN
  Company Number: CH-AMGEN-CHESP2025215200

PATIENT
  Age: 42 Year
  Sex: Female

DRUGS (1)
  1. REPATHA [Suspect]
     Active Substance: EVOLOCUMAB
     Indication: Hypercholesterolaemia
     Dosage: 140 MILLIGRAM
     Route: 058
     Dates: start: 20250925

REACTIONS (1)
  - Neuritis [Unknown]

NARRATIVE: CASE EVENT DATE: 20250925
